FAERS Safety Report 10278408 (Version 1)
Quarter: 2014Q3

REPORT INFORMATION
  Report Type: Spontaneous
  Country: BR (occurrence: BR)
  Receive Date: 20140704
  Receipt Date: 20140704
  Transmission Date: 20150326
  Serious: Yes (Hospitalization, Disabling)
  Sender: FDA-Public Use
  Company Number: BR-ASTRAZENECA-2014SE47899

PATIENT
  Age: 1004 Month
  Sex: Female
  Weight: 54.6 kg

DRUGS (4)
  1. CITALOR [Concomitant]
     Active Substance: ATORVASTATIN
     Indication: CARDIOMYOPATHY
     Route: 048
     Dates: start: 2008
  2. OTHER CONCOMITANT MEDICATIONS [Concomitant]
  3. ATACAND HCT [Suspect]
     Active Substance: CANDESARTAN CILEXETIL\HYDROCHLOROTHIAZIDE
     Indication: HYPERTENSION
     Dosage: 16/12.5 MG, DAILY
     Route: 048
     Dates: start: 2013
  4. ASPIRINA [Concomitant]
     Active Substance: ASPIRIN
     Indication: CARDIOMYOPATHY
     Route: 048
     Dates: start: 2008

REACTIONS (4)
  - Fall [Recovered/Resolved]
  - Lower limb fracture [Recovered/Resolved with Sequelae]
  - Arthralgia [Not Recovered/Not Resolved]
  - Gait disturbance [Not Recovered/Not Resolved]

NARRATIVE: CASE EVENT DATE: 201310
